FAERS Safety Report 5584339-2 (Version None)
Quarter: 2007Q4

REPORT INFORMATION
  Report Type: 
  Country: None (occurrence: None)
  Receive Date: 20071130
  Receipt Date: 20070511
  Transmission Date: 20080405
  Serious: Yes (Hospitalization)
  Sender: FDA-Public Use
  Company Number: WAES 0705USA02412

PATIENT
  Age: 90 Year
  Sex: Female

DRUGS (4)
  1. FOSAMAX [Suspect]
     Indication: OSTEOPOROSIS
     Dosage: 70 MG/WKY/PO, 10 MG/DAILY/PO
     Route: 048
     Dates: start: 20030501, end: 20040501
  2. FOSAMAX [Suspect]
     Indication: OSTEOPOROSIS
     Dosage: 70 MG/WKY/PO, 10 MG/DAILY/PO
     Route: 048
     Dates: start: 20040901
  3. ANALGESIC OR ANESTHETIC [Concomitant]
  4. BLOOD THINNER [Concomitant]

REACTIONS (1)
  - CONSTIPATION [None]
